FAERS Safety Report 5830790-2 (Version None)
Quarter: 2008Q3

REPORT INFORMATION
  Report Type: 
  Country: None (occurrence: None)
  Receive Date: 20080801
  Receipt Date: 20071120
  Transmission Date: 20090109
  Serious: Yes (Death, Hospitalization)
  Sender: FDA-Public Use
  Company Number: US-BRISTOL-MYERS SQUIBB COMPANY-13989397

PATIENT
  Age: 80 Year
  Sex: Female

DRUGS (3)
  1. COUMADIN [Suspect]
     Dates: start: 20070517
  2. PLAVIX [Suspect]
     Indication: CARDIOVERSION
  3. ENOXAPARIN SODIUM [Suspect]
     Dosage: ADMINISTERED AS INJECTION
     Dates: start: 20070517

REACTIONS (4)
  - ABDOMINAL PAIN [None]
  - HAEMATOMA [None]
  - HAEMORRHAGE [None]
  - INJECTION SITE HAEMATOMA [None]
